FAERS Safety Report 8068205-9 (Version None)
Quarter: 2012Q1

REPORT INFORMATION
  Report Type: 
  Country: None (occurrence: None)
  Receive Date: 20120124
  Receipt Date: 20110928
  Transmission Date: 20120608
  Serious: No
  Sender: FDA-Public Use
  Company Number: US-AMGEN-USASP2011047477

PATIENT
  Age: 44 Year
  Sex: Male
  Weight: 118.3 kg

DRUGS (9)
  1. XGEVA [Suspect]
     Indication: METASTASES TO BONE
     Dosage: 120 MG, Q4WK
     Dates: start: 20110804, end: 20110907
  2. RISPERDAL [Concomitant]
     Dosage: 2 MG, UNK
  3. WELLBUTRIN [Concomitant]
     Dosage: 300 MG, UNK
  4. MEGACE [Concomitant]
     Dosage: 400 MG, UNK
  5. PHENERGAN [Concomitant]
     Dosage: UNK UNK, PRN
  6. OXYCODONE HCL [Concomitant]
     Dosage: 5 MG, PRN
  7. DURAGESIC-100 [Concomitant]
     Dosage: 75 MG, UNK
  8. COUMADIN [Concomitant]
     Dosage: UNK
  9. ONDANSETRON HCL [Concomitant]
     Dosage: UNK

REACTIONS (4)
  - TACHYPNOEA [None]
  - MUSCULOSKELETAL CHEST PAIN [None]
  - CHEST PAIN [None]
  - DYSPNOEA [None]
